FAERS Safety Report 14948725 (Version 9)
Quarter: 2019Q3

REPORT INFORMATION
  Report Type: Spontaneous
  Country: FR (occurrence: FR)
  Receive Date: 20180529
  Receipt Date: 20190710
  Transmission Date: 20191004
  Serious: Yes (Life-Threatening, Hospitalization, Other)
  Sender: FDA-Public Use
  Company Number: FR-MYLANLABS-2018M1034222

PATIENT
  Age: 43 Year
  Sex: Male

DRUGS (5)
  1. QUETIAPINE. [Suspect]
     Active Substance: QUETIAPINE
     Dosage: 300 MILLIGRAM, PM (AT EVENING)
     Route: 048
  2. IMOVANE [Suspect]
     Active Substance: ZOPICLONE
     Indication: INSOMNIA
     Dosage: 8 MILLIGRAM, QD
     Dates: start: 20171106, end: 20171106
  3. QUETIAPINE. [Suspect]
     Active Substance: QUETIAPINE
     Dosage: UNKNOWN QUANTITY
     Route: 048
     Dates: start: 20171106
  4. VALIUM [Suspect]
     Active Substance: DIAZEPAM
     Indication: ALCOHOL WITHDRAWAL SYNDROME
     Dosage: 10 MILLIGRAM, Q8H
     Dates: start: 20171106, end: 20171106
  5. QUETIAPINE. [Suspect]
     Active Substance: QUETIAPINE
     Indication: MENTAL DISORDER
     Dosage: 300 MILLIGRAM
     Route: 048
     Dates: start: 20171106

REACTIONS (10)
  - Toxicity to various agents [Recovering/Resolving]
  - Wernicke^s encephalopathy [Recovered/Resolved]
  - Altered state of consciousness [Recovered/Resolved]
  - Nystagmus [Recovered/Resolved]
  - Gamma-glutamyltransferase increased [Unknown]
  - Intentional overdose [Unknown]
  - Ataxia [Recovered/Resolved]
  - Confusional state [Recovered/Resolved]
  - Agitation [Recovered/Resolved]
  - Pneumonia aspiration [Unknown]

NARRATIVE: CASE EVENT DATE: 20171106
